FAERS Safety Report 10671751 (Version 1)
Quarter: 2014Q4

REPORT INFORMATION
  Report Type: Spontaneous
  Country: US (occurrence: None)
  Receive Date: 20141222
  Receipt Date: 20141222
  Transmission Date: 20150529
  Serious: No
  Sender: FDA-Public Use
  Company Number: None

PATIENT
  Age: 39 Year
  Sex: Female
  Weight: 88.45 kg

DRUGS (1)
  1. APIDRA [Suspect]
     Active Substance: INSULIN GLULISINE
     Indication: TYPE 1 DIABETES MELLITUS
     Dosage: UP TO 60U DAILY, CONSTANT SUBCUTANEOUS
     Route: 058
     Dates: start: 20141215, end: 20141221

REACTIONS (1)
  - Nightmare [None]

NARRATIVE: CASE EVENT DATE: 20141221
